FAERS Safety Report 8192563-8 (Version None)
Quarter: 2012Q1

REPORT INFORMATION
  Report Type: 
  Country: None (occurrence: None)
  Receive Date: 20120308
  Receipt Date: 20120227
  Transmission Date: 20120608
  Serious: Yes (Life-Threatening, Disabling)
  Sender: FDA-Public Use
  Company Number: TR-AMGEN-TURSP2012013581

PATIENT
  Age: 53 Year
  Sex: Female
  Weight: 51 kg

DRUGS (1)
  1. ENBREL [Suspect]
     Indication: PSORIASIS
     Dosage: 25-50 MG, WEEKLY
     Route: 058
     Dates: start: 20070420

REACTIONS (1)
  - ADENOSQUAMOUS CELL LUNG CANCER [None]
